FAERS Safety Report 12255361 (Version 3)
Quarter: 2016Q2

REPORT INFORMATION
  Report Type: Spontaneous
  Country: US (occurrence: US)
  Receive Date: 20160412
  Receipt Date: 20160502
  Transmission Date: 20160815
  Serious: Yes (Other)
  Sender: FDA-Public Use
  Company Number: US-BEH-2016060933

PATIENT
  Age: 76 Year
  Sex: Female
  Weight: 63 kg

DRUGS (23)
  1. LMX [Concomitant]
     Active Substance: LIDOCAINE
  2. ALBUTEROL. [Concomitant]
     Active Substance: ALBUTEROL
  3. VENTOLIN [Concomitant]
     Active Substance: ALBUTEROL SULFATE
  4. PREDNISOLONE ACETATE. [Concomitant]
     Active Substance: PREDNISOLONE ACETATE
  5. METOPROLOL. [Concomitant]
     Active Substance: METOPROLOL
  6. MUPIROCIN. [Concomitant]
     Active Substance: MUPIROCIN
  7. EPIPEN [Concomitant]
     Active Substance: EPINEPHRINE
  8. ALLEGRA [Concomitant]
     Active Substance: FEXOFENADINE HYDROCHLORIDE
  9. ATORVASTATIN [Concomitant]
     Active Substance: ATORVASTATIN
  10. VITAMIN C [Concomitant]
     Active Substance: ASCORBIC ACID
  11. CLONAZEPAM. [Concomitant]
     Active Substance: CLONAZEPAM
  12. HIZENTRA [Suspect]
     Active Substance: HUMAN IMMUNOGLOBULIN G
     Indication: IMMUNODEFICIENCY COMMON VARIABLE
     Dosage: START DATE: ??-FEB-2011
     Route: 058
  13. DOXYCYCLINE. [Concomitant]
     Active Substance: DOXYCYCLINE
  14. OMEPRAZOLE. [Concomitant]
     Active Substance: OMEPRAZOLE
  15. CALCIUM + D [Concomitant]
     Active Substance: CALCIUM\VITAMIN D
  16. ASPIRIN. [Concomitant]
     Active Substance: ASPIRIN
  17. MULTIVITAMINS [Concomitant]
     Active Substance: VITAMINS
  18. METRONIDAZOLE. [Concomitant]
     Active Substance: METRONIDAZOLE
  19. DIPHENHYDRAMINE. [Concomitant]
     Active Substance: DIPHENHYDRAMINE
  20. CORTICOSTEROIDS [Concomitant]
     Active Substance: CORTICOSTEROID NOS
  21. FLUTICASONE [Concomitant]
     Active Substance: FLUTICASONE\FLUTICASONE PROPIONATE
  22. SUPER B COMPLEX [Concomitant]
     Active Substance: CYANOCOBALAMIN\DEXPANTHENOL\NIACINAMIDE\PYRIDOXINE HYDROCHLORIDE\RIBOFLAVIN 5^-PHOSPHATE SODIUM\THIAMINE HYDROCHLORIDE\VITAMIN B COMPLEX
  23. VITAMIN E [Concomitant]
     Active Substance: .ALPHA.-TOCOPHEROL

REACTIONS (4)
  - Nasal cavity packing [Unknown]
  - Diarrhoea [Unknown]
  - Chronic sinusitis [Unknown]
  - Weight decreased [Unknown]

NARRATIVE: CASE EVENT DATE: 201602
